FAERS Safety Report 22660740 (Version 1)
Quarter: 2023Q2

REPORT INFORMATION
  Report Type: Spontaneous
  Country: US (occurrence: US)
  Receive Date: 20230630
  Receipt Date: 20230630
  Transmission Date: 20230721
  Serious: No
  Sender: FDA-Public Use
  Company Number: PH-AMX-003555

PATIENT
  Sex: Female

DRUGS (3)
  1. RELYVRIO [Suspect]
     Active Substance: SODIUM PHENYLBUTYRATE\TAURURSODIOL
     Indication: Amyotrophic lateral sclerosis
     Dosage: 1 SACHET ONCE DAILY FOR 3 WEEKS THEN 1 SACHET TWICE DAILY
     Route: 050
  2. RADICAVA [Suspect]
     Active Substance: EDARAVONE
  3. Miralax (Macrogol 3350) [Concomitant]
     Indication: Constipation

REACTIONS (1)
  - Bowel movement irregularity [Unknown]
